FAERS Safety Report 8599011-4 (Version None)
Quarter: 2012Q3

REPORT INFORMATION
  Report Type: 
  Country: None (occurrence: None)
  Receive Date: 20120816
  Receipt Date: 20120806
  Transmission Date: 20120928
  Serious: Yes (Other)
  Sender: FDA-Public Use
  Company Number: PHHO2012GB011691

PATIENT

DRUGS (3)
  1. PREDNISOLONE [Suspect]
  2. NO TREATMENT RECEIVED [Suspect]
     Indication: RENAL FAILURE
  3. LEUKERAN [Suspect]

REACTIONS (1)
  - COLON CANCER [None]
